FAERS Safety Report 9377609 (Version 1)
Quarter: 2013Q3

REPORT INFORMATION
  Report Type: Spontaneous
  Country: US (occurrence: US)
  Receive Date: 20130701
  Receipt Date: 20130701
  Transmission Date: 20140515
  Serious: Yes (Hospitalization)
  Sender: FDA-Public Use
  Company Number: US-B.I. PHARMACEUTICALS,INC./RIDGEFIELD-2013-BI-18281BP

PATIENT
  Age: 61 Year
  Sex: Female
  Weight: 68 kg

DRUGS (19)
  1. SPIRIVA [Suspect]
     Indication: CHRONIC OBSTRUCTIVE PULMONARY DISEASE
     Dosage: 18 MCG
     Route: 055
     Dates: start: 2008
  2. ADVAIR [Concomitant]
     Indication: CHRONIC OBSTRUCTIVE PULMONARY DISEASE
     Dosage: STRENGTH: 500 MG / 50 MG; DAILY DOSE: 1000 MG / 100 MG
     Route: 055
     Dates: start: 1999
  3. ADVAIR [Concomitant]
     Indication: ASTHMA
  4. SINGULAIR [Concomitant]
     Indication: SEASONAL ALLERGY
     Dosage: 10 MG
     Route: 055
     Dates: start: 1999
  5. PROTONIX [Concomitant]
     Indication: GASTROOESOPHAGEAL REFLUX DISEASE
     Dosage: 40 MG
     Route: 048
     Dates: start: 2005
  6. ASPIRIN [Concomitant]
     Indication: CARDIOMYOPATHY
     Dosage: 81 MG
     Route: 048
     Dates: start: 2001
  7. VENTOLIN [Concomitant]
     Indication: CHRONIC OBSTRUCTIVE PULMONARY DISEASE
     Dosage: STRENGTH: 2 PUFFS
     Route: 055
     Dates: start: 2008
  8. VENTOLIN [Concomitant]
     Indication: ASTHMA
  9. COZAAR [Concomitant]
     Indication: HYPERTENSION
     Dosage: 25 MG
     Route: 048
     Dates: start: 1999
  10. SOMA [Concomitant]
     Indication: ARTHRITIS
     Dosage: 700 MG
     Route: 048
     Dates: start: 1999
  11. THEO-DUR [Concomitant]
     Indication: CHRONIC OBSTRUCTIVE PULMONARY DISEASE
     Dosage: 200 MG
     Route: 048
     Dates: start: 1999
  12. THEO-DUR [Concomitant]
     Indication: ASTHMA
     Dosage: 300 MG
     Route: 048
     Dates: start: 1999
  13. CELEXA [Concomitant]
     Indication: DEPRESSION
     Dosage: 20 MG
     Route: 048
     Dates: start: 2007
  14. VOLTAREN [Concomitant]
     Indication: ARTHRITIS
     Dosage: 100 MG
     Route: 048
     Dates: start: 2004
  15. POTASSIUM [Concomitant]
     Indication: BLOOD POTASSIUM DECREASED
     Dosage: 20 MEQ
     Route: 048
     Dates: start: 2000
  16. PREDNISONE [Concomitant]
     Indication: ASTHMA
     Dosage: 10 MG
     Route: 048
     Dates: start: 2013
  17. COREG [Concomitant]
     Indication: CARDIOMYOPATHY
     Dosage: 12.5 MG
     Route: 048
     Dates: start: 2001
  18. COREG [Concomitant]
     Indication: HYPERTENSION
  19. LASIX [Concomitant]
     Indication: PULMONARY OEDEMA
     Dosage: 40 MG
     Route: 048
     Dates: start: 2000

REACTIONS (2)
  - Asthma [Recovered/Resolved]
  - Atelectasis [Recovered/Resolved]
